FAERS Safety Report 7111661-0 (Version None)
Quarter: 2010Q4

REPORT INFORMATION
  Report Type: 
  Country: None (occurrence: None)
  Receive Date: 20101118
  Receipt Date: 20101105
  Transmission Date: 20110411
  Serious: Yes (Other)
  Sender: FDA-Public Use
  Company Number: PHHY2010CA56680

PATIENT
  Sex: Female

DRUGS (4)
  1. ACLASTA [Suspect]
     Indication: OSTEOPOROSIS
     Dosage: 5 MG
     Route: 042
     Dates: start: 20100813
  2. COLACE [Concomitant]
  3. CALCIUM W/VITAMIN D NOS [Concomitant]
  4. SYNTHROID [Concomitant]

REACTIONS (7)
  - CONJUNCTIVAL HAEMORRHAGE [None]
  - DERMATITIS ALLERGIC [None]
  - ERYTHEMA [None]
  - HOT FLUSH [None]
  - RASH [None]
  - URTICARIA [None]
  - VENOUS INJURY [None]
